FAERS Safety Report 7155770-9 (Version None)
Quarter: 2010Q4

REPORT INFORMATION
  Report Type: 
  Country: None (occurrence: None)
  Receive Date: 20101123
  Receipt Date: 20100820
  Transmission Date: 20110411
  Serious: No
  Sender: FDA-Public Use
  Company Number: 005942

PATIENT
  Sex: Male

DRUGS (3)
  1. CIMZIA [Suspect]
     Indication: CROHN'S DISEASE
     Dosage: 400 MG 1X/MONTH SUBCUTANEOUS, 400 MG SUBCUTANEOUS
     Route: 058
     Dates: start: 20090113
  2. CIMZIA [Suspect]
     Indication: CROHN'S DISEASE
     Dosage: 400 MG 1X/MONTH SUBCUTANEOUS, 400 MG SUBCUTANEOUS
     Route: 058
     Dates: start: 20090223
  3. CIMZIA [Suspect]

REACTIONS (2)
  - CROHN'S DISEASE [None]
  - MALAISE [None]
